FAERS Safety Report 5751671-9 (Version None)
Quarter: 2008Q2

REPORT INFORMATION
  Report Type: 
  Country: None (occurrence: None)
  Receive Date: 20080528
  Receipt Date: 20080521
  Transmission Date: 20081010
  Serious: Yes (Life-Threatening, Hospitalization)
  Sender: FDA-Public Use
  Company Number: PHHY2008MX08520

PATIENT
  Sex: Male

DRUGS (1)
  1. ZELMAC [Suspect]
     Dosage: UNK
     Route: 048

REACTIONS (1)
  - INFARCTION [None]
